FAERS Safety Report 8152524-1 (Version None)
Quarter: 2012Q1

REPORT INFORMATION
  Report Type: 
  Country: None (occurrence: None)
  Receive Date: 20120221
  Receipt Date: 20120213
  Transmission Date: 20120608
  Serious: Yes (Other)
  Sender: FDA-Public Use
  Company Number: US-PFIZER INC-2012038226

PATIENT
  Sex: Female

DRUGS (4)
  1. LO/OVRAL-28 [Suspect]
  2. ORTHO TRI-CYCLEN [Suspect]
  3. LO/OVRAL-28 [Suspect]
  4. OGESTREL 0.5/50-21 [Suspect]

REACTIONS (1)
  - MENORRHAGIA [None]
